FAERS Safety Report 14020776 (Version 1)
Quarter: 2017Q3

REPORT INFORMATION
  Report Type: Spontaneous
  Country: US (occurrence: US)
  Receive Date: 20170928
  Receipt Date: 20170928
  Transmission Date: 20171128
  Serious: No
  Sender: FDA-Public Use
  Company Number: US-ASTRAZENECA-2017SE97749

PATIENT
  Sex: Male

DRUGS (1)
  1. QUETIAPINE. [Suspect]
     Active Substance: QUETIAPINE
     Indication: INSOMNIA
     Dosage: 100 OR 200 MILLIGRAM AT NIGHT
     Route: 048
     Dates: start: 20170918

REACTIONS (3)
  - Amphetamines positive [Unknown]
  - Product use in unapproved indication [Unknown]
  - Off label use [Unknown]
